FAERS Safety Report 25527066 (Version 1)
Quarter: 2025Q3

REPORT INFORMATION
  Report Type: Spontaneous
  Country: US (occurrence: US)
  Receive Date: 20250708
  Receipt Date: 20250708
  Transmission Date: 20251020
  Serious: Yes (Death, Life-Threatening, Hospitalization)
  Sender: INDOCO REMEDIES LIMITED
  Company Number: US-MLMSERVICE-20250620-PI549580-00050-1

PATIENT
  Age: 64 Year
  Sex: Female

DRUGS (4)
  1. APIXABAN [Suspect]
     Active Substance: APIXABAN
     Indication: Product used for unknown indication
     Dosage: 5 MG (CONSUMED LARGE AMOUNT IN THE MORNING ON THE DAY BEFORE SHE CAME TO THE HOSPITAL)
     Route: 048
  2. AMLODIPINE [Suspect]
     Active Substance: AMLODIPINE BESYLATE
     Indication: Product used for unknown indication
     Dosage: 10 MG PER DAY (CONSUMED LARGE AMOUNT IN THE MORNING ON THE DAY BEFORE SHE CAME TO THE HOSPITAL)
     Route: 048
  3. TORSEMIDE [Suspect]
     Active Substance: TORSEMIDE
     Indication: Product used for unknown indication
     Route: 048
  4. SERTRALINE [Concomitant]
     Active Substance: SERTRALINE HYDROCHLORIDE
     Indication: Product used for unknown indication
     Dosage: 100 MG (BY MOUTH AT BEDTIME)
     Route: 048

REACTIONS (2)
  - Completed suicide [Fatal]
  - Intentional overdose [Fatal]
